FAERS Safety Report 7220850-6 (Version None)
Quarter: 2011Q1

REPORT INFORMATION
  Report Type: 
  Country: None (occurrence: None)
  Receive Date: 20110112
  Receipt Date: 20101230
  Transmission Date: 20110831
  Serious: Yes (Hospitalization)
  Sender: FDA-Public Use
  Company Number: US-CELGENEUS-163-21880-10123304

PATIENT
  Sex: Female

DRUGS (2)
  1. REVLIMID [Suspect]
     Route: 048
     Dates: start: 20101229
  2. REVLIMID [Suspect]
     Indication: MULTIPLE MYELOMA
     Route: 048
     Dates: start: 20101208, end: 20101215

REACTIONS (4)
  - OXYGEN SATURATION DECREASED [None]
  - RESPIRATORY TRACT CONGESTION [None]
  - CONSTIPATION [None]
  - RIB FRACTURE [None]
